FAERS Safety Report 6989853 (Version 6)
Quarter: 2013Q4

REPORT INFORMATION
  Report Type: Spontaneous
  Country: US (occurrence: US)
  Receive Date: 20090508
  Receipt Date: 20131009
  Transmission Date: 20140711
  Serious: Yes (Hospitalization, Other)
  Sender: FDA-Public Use
  Company Number: US-ROCHE-596097

PATIENT
  Age: 21 Year
  Sex: Male
  Weight: 93 kg

DRUGS (2)
  1. ACCUTANE [Suspect]
     Indication: ACNE
     Route: 065
     Dates: start: 20010223, end: 20020915
  2. ACCUTANE [Suspect]
     Route: 065
     Dates: start: 20020102, end: 20020915

REACTIONS (14)
  - Ileal perforation [Recovered/Resolved]
  - Abdominal abscess [Recovered/Resolved]
  - Inflammatory bowel disease [Unknown]
  - Crohn^s disease [Recovering/Resolving]
  - Proctitis ulcerative [Recovering/Resolving]
  - Depression [Unknown]
  - Intestinal obstruction [Unknown]
  - Hand fracture [Unknown]
  - Lip dry [Unknown]
  - Epistaxis [Not Recovered/Not Resolved]
  - Dry skin [Unknown]
  - Cheilitis [Unknown]
  - Gastrooesophageal reflux disease [Unknown]
  - Blood triglycerides increased [Unknown]
